FAERS Safety Report 10614803 (Version 2)
Quarter: 2014Q4

REPORT INFORMATION
  Report Type: Report from Study
  Country: US (occurrence: US)
  Receive Date: 20141201
  Receipt Date: 20141224
  Transmission Date: 20150529
  Serious: Yes (Hospitalization, Other)
  Sender: FDA-Public Use
  Company Number: US-AMGEN-USASL2014091913

PATIENT
  Age: 70 Year
  Sex: Female

DRUGS (1)
  1. PROLIA [Suspect]
     Active Substance: DENOSUMAB
     Indication: OSTEOPOROSIS
     Dosage: UNK
     Route: 065
     Dates: start: 201406

REACTIONS (6)
  - Kidney infection [Recovered/Resolved]
  - Mobility decreased [Unknown]
  - Sinus headache [Recovered/Resolved]
  - Jaw disorder [Unknown]
  - Laryngitis [Recovering/Resolving]
  - Pain in jaw [Unknown]
